FAERS Safety Report 5633728-6 (Version None)
Quarter: 2008Q1

REPORT INFORMATION
  Report Type: 
  Country: None (occurrence: None)
  Receive Date: 20080131
  Receipt Date: 20071129
  Transmission Date: 20080703
  Serious: No
  Sender: FDA-Public Use
  Company Number: 163-21880-07111684

PATIENT
  Age: 87 Year
  Sex: Male
  Weight: 69.8539 kg

DRUGS (9)
  1. REVLIMID [Suspect]
     Indication: MULTIPLE MYELOMA
     Dosage: 25 MG, 1 IN 1 D, ORAL
     Route: 048
     Dates: start: 20071128
  2. DEXAMETHASONE TAB [Concomitant]
  3. COUMADIN [Concomitant]
  4. NEXIUM [Concomitant]
  5. FOLIC ACID [Concomitant]
  6. DOXAZOSIN MESYLATE [Concomitant]
  7. ASPIRIN [Concomitant]
  8. PROCRIT [Concomitant]
  9. VITAMIN B12 [Concomitant]

REACTIONS (1)
  - SENSATION OF HEAVINESS [None]
